FAERS Safety Report 11188883 (Version 1)
Quarter: 2015Q2

REPORT INFORMATION
  Report Type: Spontaneous
  Country: CL (occurrence: CL)
  Receive Date: 20150615
  Receipt Date: 20150615
  Transmission Date: 20150821
  Serious: Yes (Life-Threatening, Hospitalization)
  Sender: FDA-Public Use
  Company Number: CL-INVENTIA-000060

PATIENT
  Age: 74 Year
  Sex: Male

DRUGS (7)
  1. SPIRONOLACTONE. [Interacting]
     Active Substance: SPIRONOLACTONE
     Indication: CORONARY ARTERY DISEASE
  2. METFORMIN [Suspect]
     Active Substance: METFORMIN HYDROCHLORIDE
     Indication: TYPE 2 DIABETES MELLITUS
  3. ATORVASTATIN [Concomitant]
     Active Substance: ATORVASTATIN
     Indication: CORONARY ARTERY DISEASE
  4. ACETYLSALICYLIC ACID [Interacting]
     Active Substance: ASPIRIN
     Indication: CORONARY ARTERY DISEASE
  5. BISOPROLOL [Interacting]
     Active Substance: BISOPROLOL
     Indication: CORONARY ARTERY DISEASE
  6. FUROSEMIDE. [Concomitant]
     Active Substance: FUROSEMIDE
     Indication: CORONARY ARTERY DISEASE
  7. VILDAGLIPTINE AND METFORMIN [Interacting]
     Active Substance: METFORMIN\VILDAGLIPTIN
     Indication: TYPE 2 DIABETES MELLITUS
     Dosage: VILDAGLIPTIN 50 MG + METFORMIN 1,000 MG

REACTIONS (8)
  - Drug interaction [Unknown]
  - Bradyarrhythmia [Recovered/Resolved]
  - Metabolic acidosis [None]
  - Overdose [Unknown]
  - Atrioventricular block [None]
  - Continuous haemodiafiltration [None]
  - Hyperkalaemia [Recovered/Resolved]
  - Lactic acidosis [Recovered/Resolved]
